FAERS Safety Report 5588053-9 (Version None)
Quarter: 2008Q1

REPORT INFORMATION
  Report Type: 
  Country: None (occurrence: None)
  Receive Date: 20080109
  Receipt Date: 20080109
  Transmission Date: 20080703
  Serious: No
  Sender: FDA-Public Use
  Company Number: None

PATIENT
  Age: 74 Year
  Sex: Male
  Weight: 87.7 kg

DRUGS (1)
  1. LEVAQUIN IN DEXTROSE 5% [Suspect]
     Indication: INFECTION
     Dosage: 500 MG QD IV
     Route: 042
     Dates: start: 20080103

REACTIONS (3)
  - DYSPNOEA [None]
  - PRURITUS [None]
  - RASH [None]
